FAERS Safety Report 23996204 (Version 2)
Quarter: 2024Q4

REPORT INFORMATION
  Report Type: Report from Study
  Country: CA (occurrence: CA)
  Receive Date: 20240620
  Receipt Date: 20241023
  Transmission Date: 20250115
  Serious: Yes (Other)
  Sender: OTSUKA
  Company Number: CA-OTSUKA-2024_017188

PATIENT
  Sex: Female

DRUGS (2)
  1. TOLVAPTAN [Suspect]
     Active Substance: TOLVAPTAN
     Indication: Congenital cystic kidney disease
     Dosage: 45 MG, QD
     Route: 048
     Dates: start: 20191009
  2. TOLVAPTAN [Suspect]
     Active Substance: TOLVAPTAN
     Dosage: 15 MG, QD
     Route: 048
     Dates: start: 20191009

REACTIONS (1)
  - Type 2 diabetes mellitus [Unknown]
